FAERS Safety Report 16467332 (Version 1)
Quarter: 2019Q2

REPORT INFORMATION
  Report Type: Spontaneous
  Country: AT (occurrence: AT)
  Receive Date: 20190624
  Receipt Date: 20190624
  Transmission Date: 20190711
  Serious: No
  Sender: FDA-Public Use
  Company Number: AT-LUPIN PHARMACEUTICALS INC.-2016-05993

PATIENT
  Age: 32 Year
  Sex: Male

DRUGS (5)
  1. AMISULPRIDE [Suspect]
     Active Substance: AMISULPRIDE
     Indication: CHOREA
     Dosage: UNK
     Route: 065
  2. RISPERIDONE. [Suspect]
     Active Substance: RISPERIDONE
     Indication: CHOREA
     Dosage: UNK
     Route: 065
  3. QUETIAPINE. [Suspect]
     Active Substance: QUETIAPINE
     Indication: CHOREA
     Dosage: UNK
     Route: 065
  4. TIAPRIDE [Suspect]
     Active Substance: TIAPRIDE
     Indication: CHOREA
     Dosage: UNK
     Route: 065
  5. CLONAZEPAM. [Suspect]
     Active Substance: CLONAZEPAM
     Indication: CHOREA
     Dosage: UNK
     Route: 065

REACTIONS (3)
  - Anhedonia [Unknown]
  - Fatigue [Unknown]
  - Apathy [Unknown]
